FAERS Safety Report 20025155 (Version 2)
Quarter: 2021Q4

REPORT INFORMATION
  Report Type: Spontaneous
  Country: US (occurrence: US)
  Receive Date: 20211102
  Receipt Date: 20211102
  Transmission Date: 20220303
  Serious: Yes (Other)
  Sender: FDA-Public Use
  Company Number: US-ENDO PHARMACEUTICALS INC-2021-012447

PATIENT
  Age: 29 Year
  Sex: Male

DRUGS (1)
  1. NALOXONE HYDROCHLORIDE [Suspect]
     Active Substance: NALOXONE HYDROCHLORIDE
     Indication: Product used for unknown indication
     Dosage: 1 MG, SINGLE
     Route: 042

REACTIONS (1)
  - Non-cardiogenic pulmonary oedema [Recovered/Resolved]
